FAERS Safety Report 24456944 (Version 1)
Quarter: 2024Q4

REPORT INFORMATION
  Report Type: Spontaneous
  Country: US (occurrence: US)
  Receive Date: 20241018
  Receipt Date: 20241018
  Transmission Date: 20250115
  Serious: No
  Sender: Day One Biopharmaceuticals
  Company Number: US-DAY ONE BIOPHARMACEUTICALS, INC.-2024US000794

PATIENT
  Age: 5 Year
  Sex: Male

DRUGS (1)
  1. OJEMDA [Suspect]
     Active Substance: TOVORAFENIB
     Indication: Ganglioglioma
     Dosage: UNK
     Route: 065
     Dates: start: 20240611

REACTIONS (1)
  - Rib fracture [Recovering/Resolving]

NARRATIVE: CASE EVENT DATE: 20240101
